FAERS Safety Report 9880164 (Version 1)
Quarter: 2014Q1

REPORT INFORMATION
  Report Type: Spontaneous
  Country: US (occurrence: US)
  Receive Date: 20140207
  Receipt Date: 20140207
  Transmission Date: 20141002
  Serious: No
  Sender: FDA-Public Use
  Company Number: US-BIOGENIDEC-2014BI009122

PATIENT
  Age: 34 Year
  Sex: Female

DRUGS (11)
  1. TECFIDERA [Suspect]
     Indication: MULTIPLE SCLEROSIS
     Route: 048
     Dates: start: 20140117, end: 20140123
  2. TECFIDERA [Suspect]
     Indication: MULTIPLE SCLEROSIS
     Route: 048
     Dates: start: 20140123
  3. TECFIDERA [Suspect]
     Indication: MULTIPLE SCLEROSIS
     Route: 048
     Dates: start: 20140124
  4. KLONOPIN [Concomitant]
     Indication: PANIC ATTACK
  5. ALPRAZOLAM [Concomitant]
     Indication: PANIC ATTACK
  6. LAMICTAL [Concomitant]
     Indication: SCHIZOAFFECTIVE DISORDER
  7. OMEPRAZOLE [Concomitant]
     Indication: GASTROOESOPHAGEAL REFLUX DISEASE
  8. CETIRZINE [Concomitant]
     Indication: HYPERSENSITIVITY
  9. VALTREX [Concomitant]
  10. ERRIN [Concomitant]
     Indication: CONTRACEPTION
  11. PROMETHAZINE [Concomitant]
     Indication: APPETITE DISORDER

REACTIONS (8)
  - Dysphonia [Not Recovered/Not Resolved]
  - Constipation [Not Recovered/Not Resolved]
  - Decreased appetite [Not Recovered/Not Resolved]
  - Fatigue [Not Recovered/Not Resolved]
  - Abdominal pain upper [Not Recovered/Not Resolved]
  - Flushing [Not Recovered/Not Resolved]
  - Rash pruritic [Not Recovered/Not Resolved]
  - Diarrhoea [Not Recovered/Not Resolved]
